FAERS Safety Report 6940190-X (Version None)
Quarter: 2010Q3

REPORT INFORMATION
  Report Type: 
  Country: None (occurrence: None)
  Receive Date: 20100825
  Receipt Date: 20100816
  Transmission Date: 20110219
  Serious: Yes (Hospitalization)
  Sender: FDA-Public Use
  Company Number: FR-ELI_LILLY_AND_COMPANY-FR201008004162

PATIENT
  Sex: Male

DRUGS (9)
  1. HUMALOG [Suspect]
     Indication: TYPE 1 DIABETES MELLITUS
     Dosage: 32 IU, 2/D
     Route: 058
  2. CRESTOR [Concomitant]
     Dosage: 10 MG, DAILY (1/D)
     Route: 048
  3. TOPIRAMATE [Concomitant]
     Dosage: 50 MG, 2/D
     Route: 048
  4. NEXIUM [Concomitant]
     Dosage: 40 MG, DAILY (1/D)
     Route: 048
  5. AVLOCARDYL [Concomitant]
     Dosage: 40 MG, 2/D
     Route: 048
  6. SEROPLEX [Concomitant]
     Dosage: 20 MG, DAILY (1/D)
     Route: 048
     Dates: end: 20100315
  7. CREON [Concomitant]
     Route: 048
  8. DOGMATIL [Concomitant]
     Dosage: 50 MG, 2/D
     Route: 048
  9. DOLIPRANE [Concomitant]
     Dosage: 3 G, 3/D
     Route: 048

REACTIONS (1)
  - PANCREATITIS ACUTE [None]
